FAERS Safety Report 4966719-9 (Version None)
Quarter: 2006Q1

REPORT INFORMATION
  Report Type: 
  Country: None (occurrence: None)
  Receive Date: 20060201
  Receipt Date: 20051114
  Transmission Date: 20060701
  Serious: No
  Sender: FDA-Public Use
  Company Number: 2005PV004993

PATIENT
  Age: 64 Year
  Sex: Male
  Weight: 113.3993 kg

DRUGS (10)
  1. BYETTA [Suspect]
     Indication: DIABETES MELLITUS NON-INSULIN-DEPENDENT
     Dosage: 10 MCG;BID;SC, 5 MCG;BID;SC
     Route: 058
     Dates: start: 20050801, end: 20050101
  2. BYETTA [Suspect]
     Indication: DIABETES MELLITUS NON-INSULIN-DEPENDENT
     Dosage: 10 MCG;BID;SC, 5 MCG;BID;SC
     Route: 058
     Dates: start: 20050901
  3. SYNTHROID [Concomitant]
  4. GLYNIPRIDE [Concomitant]
  5. INDAPAMIDE [Concomitant]
  6. GEMFIBROZIL [Concomitant]
  7. VERAPAMIL [Concomitant]
  8. LIPITOR [Concomitant]
  9. AVAPRO [Concomitant]
  10. LANTUS [Concomitant]

REACTIONS (2)
  - ERYTHEMA [None]
  - FEELING HOT [None]
